FAERS Safety Report 8086508-9 (Version None)
Quarter: 2012Q1

REPORT INFORMATION
  Report Type: 
  Country: None (occurrence: None)
  Receive Date: 20120128
  Receipt Date: 20110502
  Transmission Date: 20120608
  Serious: No
  Sender: FDA-Public Use
  Company Number: US-ABBOTT-11P-163-0724091-00

PATIENT
  Sex: Male
  Weight: 92.616 kg

DRUGS (9)
  1. IMURAN [Concomitant]
     Indication: CROHN'S DISEASE
  2. UNKNOWN PAIN MEDICINE [Concomitant]
     Indication: CROHN'S DISEASE
  3. NORCO [Concomitant]
     Indication: PAIN
  4. UNKNOWN CONFUSION MEDICATION [Concomitant]
     Indication: CONFUSIONAL STATE
  5. HUMIRA [Suspect]
     Indication: CROHN'S DISEASE
  6. FLAGYL [Suspect]
  7. NEURONTIN [Concomitant]
     Indication: PAIN IN EXTREMITY
  8. NEURONTIN [Concomitant]
     Indication: PARAESTHESIA
  9. DILAUDID [Concomitant]
     Indication: PAIN

REACTIONS (4)
  - PAIN IN EXTREMITY [None]
  - NERVOUSNESS [None]
  - PARAESTHESIA [None]
  - CONFUSIONAL STATE [None]
